FAERS Safety Report 21228493 (Version 1)
Quarter: 2022Q3

REPORT INFORMATION
  Report Type: Report from Study
  Country: US (occurrence: US)
  Receive Date: 20220818
  Receipt Date: 20220818
  Transmission Date: 20221027
  Serious: Yes (Other)
  Sender: FDA-Public Use
  Company Number: US-JNJFOC-20220825322

PATIENT
  Age: 43 Year
  Sex: Male

DRUGS (4)
  1. SPRAVATO [Suspect]
     Active Substance: ESKETAMINE
     Indication: Depression
     Dosage: DOSE NOT REPORTED, 1 DOSE
     Dates: start: 20220728, end: 20220728
  2. SPRAVATO [Suspect]
     Active Substance: ESKETAMINE
     Dosage: DOSE NOT REPORTED, 1 DOSE
     Dates: start: 20220731, end: 20220731
  3. SPRAVATO [Suspect]
     Active Substance: ESKETAMINE
     Dosage: 84 MG, 1 DOSE
     Dates: start: 20220809, end: 20220809
  4. SPRAVATO [Suspect]
     Active Substance: ESKETAMINE
     Dosage: 84 MG, 1 DOSE
     Dates: start: 20220811, end: 20220811

REACTIONS (2)
  - Hypertension [Recovered/Resolved]
  - Nausea [Recovered/Resolved]

NARRATIVE: CASE EVENT DATE: 20220809
